FAERS Safety Report 5586476-5 (Version None)
Quarter: 2007Q4

REPORT INFORMATION
  Report Type: 
  Country: None (occurrence: None)
  Receive Date: 20071205
  Receipt Date: 20061024
  Transmission Date: 20080405
  Serious: Yes (Other)
  Sender: FDA-Public Use
  Company Number: HQWYE588125OCT06

PATIENT
  Age: 77 Year
  Sex: Female
  Weight: 55.39 kg

DRUGS (5)
  1. EFFEXOR XR [Suspect]
     Indication: FRUSTRATION
     Dosage: 75 MG 3X PER 1 DAY, ORAL
     Route: 048
     Dates: start: 20050101
  2. ASPIRIN [Concomitant]
  3. LEVOXYL [Concomitant]
  4. AMBIEN [Concomitant]
  5. KLONOPIN [Concomitant]

REACTIONS (3)
  - DRUG EFFECT DECREASED [None]
  - MEDICATION ERROR [None]
  - NERVOUSNESS [None]
